FAERS Safety Report 11771331 (Version 2)
Quarter: 2015Q4

REPORT INFORMATION
  Report Type: Spontaneous
  Country: US (occurrence: US)
  Receive Date: 20151124
  Receipt Date: 20151207
  Transmission Date: 20160304
  Serious: Yes (Hospitalization)
  Sender: FDA-Public Use
  Company Number: US-ROCHE-1666074

PATIENT
  Sex: Female
  Weight: 149.82 kg

DRUGS (1)
  1. ESBRIET [Suspect]
     Active Substance: PIRFENIDONE
     Indication: IDIOPATHIC PULMONARY FIBROSIS
     Dosage: 2403 MG DAILY
     Route: 048
     Dates: start: 20150212

REACTIONS (2)
  - Arthralgia [Unknown]
  - Intervertebral disc protrusion [Unknown]
